FAERS Safety Report 23866987 (Version 1)
Quarter: 2024Q2

REPORT INFORMATION
  Report Type: Spontaneous
  Country: US (occurrence: US)
  Receive Date: 20240517
  Receipt Date: 20240517
  Transmission Date: 20240715
  Serious: No
  Sender: FDA-Public Use
  Company Number: US-AMGEN-USASP2024097261

PATIENT
  Age: 68 Year
  Sex: Male

DRUGS (2)
  1. REPATHA [Suspect]
     Active Substance: EVOLOCUMAB
     Indication: Blood cholesterol increased
     Dosage: 140 MILLIGRAM, Q2WK (TWICE A MONTH)
     Route: 058
  2. LOSARTAN [Concomitant]
     Active Substance: LOSARTAN
     Indication: Hypertension
     Dosage: 12.5 MILLIGRAM, QD (DAILY)
     Route: 065

REACTIONS (4)
  - Wrong technique in product usage process [Unknown]
  - Muscle spasms [Unknown]
  - Device difficult to use [Unknown]
  - Myalgia [Unknown]

NARRATIVE: CASE EVENT DATE: 20240407
